FAERS Safety Report 26056059 (Version 1)
Quarter: 2025Q4

REPORT INFORMATION
  Report Type: Spontaneous
  Country: US (occurrence: US)
  Receive Date: 20251118
  Receipt Date: 20251118
  Transmission Date: 20260117
  Serious: No
  Sender: GILEAD
  Company Number: US-GILEAD-2025-0736531

PATIENT
  Sex: Male

DRUGS (2)
  1. VOSEVI [Suspect]
     Active Substance: SOFOSBUVIR\VELPATASVIR\VOXILAPREVIR
     Indication: Product used for unknown indication
     Dosage: UNK
     Route: 065
  2. RIBAVIRIN [Concomitant]
     Active Substance: RIBAVIRIN

REACTIONS (1)
  - Drug ineffective [Unknown]
